FAERS Safety Report 13963197 (Version 1)
Quarter: 2017Q3

REPORT INFORMATION
  Report Type: Spontaneous
  Country: US (occurrence: None)
  Receive Date: 20170912
  Receipt Date: 20170912
  Transmission Date: 20171128
  Serious: Yes (Hospitalization)
  Sender: FDA-Public Use
  Company Number: None

PATIENT
  Age: 57 Year
  Sex: Female

DRUGS (1)
  1. DALTEPARIN [Suspect]
     Active Substance: DALTEPARIN

REACTIONS (9)
  - Sepsis [None]
  - Syncope [None]
  - Hypomagnesaemia [None]
  - Abscess [None]
  - Malaise [None]
  - Hypokalaemia [None]
  - Hypoalbuminaemia [None]
  - Fall [None]
  - Intra-abdominal fluid collection [None]

NARRATIVE: CASE EVENT DATE: 20170909
